FAERS Safety Report 9370460 (Version 3)
Quarter: 2014Q2

REPORT INFORMATION
  Report Type: Spontaneous
  Country: US (occurrence: US)
  Receive Date: 20130626
  Receipt Date: 20140402
  Transmission Date: 20141212
  Serious: Yes (Hospitalization)
  Sender: FDA-Public Use
  Company Number: US-GLAXOSMITHKLINE-A1028354A

PATIENT
  Age: 57 Year
  Sex: Male
  Weight: 102.3 kg

DRUGS (1)
  1. AVANDIA [Suspect]
     Indication: DIABETES MELLITUS
     Dosage: 8MG PER DAY
     Route: 048
     Dates: start: 2000, end: 2007

REACTIONS (4)
  - Myocardial ischaemia [Unknown]
  - Myocardial infarction [Unknown]
  - Pericardial effusion [Unknown]
  - Cardiac failure congestive [Unknown]
